FAERS Safety Report 8997339 (Version 1)
Quarter: 2013Q1

REPORT INFORMATION
  Report Type: Spontaneous
  Country: US (occurrence: US)
  Receive Date: 20130104
  Receipt Date: 20130104
  Transmission Date: 20140127
  Serious: No
  Sender: FDA-Public Use
  Company Number: US-PFIZER INC-2013001210

PATIENT
  Age: 43 Year
  Sex: Female

DRUGS (1)
  1. ADVIL CONGESTION RELIEF [Suspect]
     Dosage: UNK

REACTIONS (3)
  - Somnolence [Unknown]
  - Dizziness [Unknown]
  - Nasal dryness [Unknown]
